FAERS Safety Report 16921027 (Version 1)
Quarter: 2019Q4

REPORT INFORMATION
  Report Type: Spontaneous
  Country: BR (occurrence: BR)
  Receive Date: 20191015
  Receipt Date: 20191015
  Transmission Date: 20200122
  Serious: Yes (Other)
  Sender: FDA-Public Use
  Company Number: PHHY2019BR228065

PATIENT
  Sex: Female

DRUGS (4)
  1. NEOTIAPIM [Suspect]
     Active Substance: QUETIAPINE
     Indication: DEPRESSION
  2. NEOTIAPIM [Suspect]
     Active Substance: QUETIAPINE
     Indication: BIPOLAR DISORDER
  3. NEOTIAPIM [Suspect]
     Active Substance: QUETIAPINE
     Indication: PSYCHOTIC DISORDER
  4. NEOTIAPIM [Suspect]
     Active Substance: QUETIAPINE
     Indication: DEMENTIA
     Dosage: UNK
     Route: 065

REACTIONS (5)
  - Self-injurious ideation [Unknown]
  - Aggression [Unknown]
  - Off label use [Unknown]
  - Depression [Unknown]
  - Psychotic disorder [Unknown]
